FAERS Safety Report 18476491 (Version 1)
Quarter: 2020Q4

REPORT INFORMATION
  Report Type: Spontaneous
  Country: PT (occurrence: PT)
  Receive Date: 20201106
  Receipt Date: 20201106
  Transmission Date: 20210114
  Serious: Yes (Hospitalization, Other)
  Sender: FDA-Public Use
  Company Number: PT-AUROBINDO-AUR-APL-2020-054554

PATIENT
  Age: 86 Year
  Sex: Male

DRUGS (3)
  1. PREDNISOLONE. [Interacting]
     Active Substance: PREDNISOLONE
     Indication: COLITIS ULCERATIVE
  2. METFORMIN [Suspect]
     Active Substance: METFORMIN HYDROCHLORIDE
     Indication: DIABETES MELLITUS INADEQUATE CONTROL
     Route: 065
  3. MESALAZINE [Concomitant]
     Active Substance: MESALAMINE
     Indication: COLITIS ULCERATIVE
     Route: 065

REACTIONS (9)
  - Drug interaction [Unknown]
  - Dermatitis contact [Recovering/Resolving]
  - Skin reaction [Recovering/Resolving]
  - Toxic skin eruption [Recovering/Resolving]
  - Staphylococcal infection [Recovered/Resolved]
  - Rash erythematous [Recovering/Resolving]
  - Diabetes mellitus inadequate control [Unknown]
  - Pustular psoriasis [Recovered/Resolved]
  - Bacteraemia [Recovering/Resolving]
